FAERS Safety Report 7721702-5 (Version None)
Quarter: 2011Q3

REPORT INFORMATION
  Report Type: 
  Country: None (occurrence: None)
  Receive Date: 20110831
  Receipt Date: 20110819
  Transmission Date: 20111222
  Serious: Yes (Other)
  Sender: FDA-Public Use
  Company Number: JP-GLAXOSMITHKLINE-B0741705A

PATIENT
  Sex: Female

DRUGS (2)
  1. PAXIL [Suspect]
     Indication: DEPRESSION
     Route: 048
     Dates: start: 20110601
  2. U PAN [Concomitant]
     Indication: DEPRESSION
     Dosage: .5IUAX PER DAY
     Route: 048

REACTIONS (6)
  - VOMITING [None]
  - OVERDOSE [None]
  - SOMNOLENCE [None]
  - DIZZINESS [None]
  - DIARRHOEA [None]
  - SUICIDE ATTEMPT [None]
